FAERS Safety Report 6869244-3 (Version None)
Quarter: 2010Q3

REPORT INFORMATION
  Report Type: 
  Country: None (occurrence: None)
  Receive Date: 20100722
  Receipt Date: 20080716
  Transmission Date: 20110219
  Serious: No
  Sender: FDA-Public Use
  Company Number: US-PFIZER INC-2008060379

PATIENT
  Sex: Male
  Weight: 104.33 kg

DRUGS (2)
  1. CHANTIX [Suspect]
     Dates: start: 20080707
  2. NEXIUM [Concomitant]

REACTIONS (2)
  - OROPHARYNGEAL PAIN [None]
  - PYREXIA [None]
